FAERS Safety Report 24632036 (Version 1)
Quarter: 2024Q4

REPORT INFORMATION
  Report Type: Spontaneous
  Country: PL (occurrence: PL)
  Receive Date: 20241118
  Receipt Date: 20241118
  Transmission Date: 20250114
  Serious: Yes (Other)
  Sender: GENEYORK PHARMACEUTICALS GROUP LLC
  Company Number: PL-GENEYORK-2024PPLIT00063

PATIENT
  Age: 75 Year
  Sex: Male

DRUGS (2)
  1. PREDNISONE [Suspect]
     Active Substance: PREDNISONE
     Indication: Immunosuppressant drug therapy
     Route: 065
  2. AZATHIOPRINE [Suspect]
     Active Substance: AZATHIOPRINE
     Indication: Immunosuppressant drug therapy
     Route: 065

REACTIONS (4)
  - Squamous cell carcinoma [Unknown]
  - Basal cell carcinoma [Unknown]
  - Renal transplant [None]
  - Dialysis [None]
